FAERS Safety Report 13564943 (Version 3)
Quarter: 2017Q3

REPORT INFORMATION
  Report Type: Spontaneous
  Country: KR (occurrence: KR)
  Receive Date: 20170519
  Receipt Date: 20170802
  Transmission Date: 20171127
  Serious: Yes (Other)
  Sender: FDA-Public Use
  Company Number: KR-009507513-1705KOR007834

PATIENT
  Age: 55 Year
  Sex: Female
  Weight: 54.2 kg

DRUGS (48)
  1. ENDOXAN [Concomitant]
     Active Substance: CYCLOPHOSPHAMIDE
     Dosage: 1237.5 MG, ONCE (ROUTE: INF); CYCLE 21
     Dates: start: 20170306, end: 20170306
  2. ENDOXAN [Concomitant]
     Active Substance: CYCLOPHOSPHAMIDE
     Dosage: 1252.5 MG, ONCE (ROUTE: INF); CYCLE 21
     Dates: start: 20170327, end: 20170327
  3. DOXORUBICIN [Concomitant]
     Active Substance: DOXORUBICIN
     Dosage: 83.25 MG, ONCE (ROUTE: INF); CYCLE 21
     Dates: start: 20170327, end: 20170327
  4. SOLONDO [Concomitant]
     Active Substance: PREDNISOLONE
     Indication: PROPHYLAXIS OF NAUSEA AND VOMITING
     Dosage: 40 MG, QD
     Route: 048
     Dates: start: 20170112, end: 20170116
  5. SOLONDO [Concomitant]
     Active Substance: PREDNISOLONE
     Dosage: 30 MG, BID
     Route: 048
     Dates: start: 20170112, end: 20170116
  6. SOLONDO [Concomitant]
     Active Substance: PREDNISOLONE
     Dosage: 30 MG, BID
     Route: 048
     Dates: start: 20170327, end: 20170329
  7. ALOXI [Concomitant]
     Active Substance: PALONOSETRON HYDROCHLORIDE
     Dosage: 0.25 MG, ONCE
     Route: 042
     Dates: start: 20170213, end: 20170213
  8. EMEND (FOSAPREPITANT DIMEGLUMINE) [Suspect]
     Active Substance: FOSAPREPITANT DIMEGLUMINE
     Dosage: 150 MG, ONCE
     Route: 042
     Dates: start: 20170213, end: 20170213
  9. VINCRISTINE SULFATE. [Concomitant]
     Active Substance: VINCRISTINE SULFATE
     Dosage: 2 MG, ONCE; CYCLE 21
     Route: 042
     Dates: start: 20170306, end: 20170306
  10. MABTHERA [Concomitant]
     Active Substance: RITUXIMAB
     Dosage: 618.75 MG, ONCE; CYCLE 21
     Route: 042
     Dates: start: 20170306, end: 20170306
  11. ENDOXAN [Concomitant]
     Active Substance: CYCLOPHOSPHAMIDE
     Dosage: 1245 MG, ONCE (ROUTE: INF); CYCLE 21
     Dates: start: 20170213, end: 20170213
  12. DOXORUBICIN [Concomitant]
     Active Substance: DOXORUBICIN
     Dosage: 82.5 MG, ONCE (ROUTE: INF); CYCLE 21
     Dates: start: 20170306, end: 20170306
  13. SOLONDO [Concomitant]
     Active Substance: PREDNISOLONE
     Dosage: 30 MG, QD
     Route: 048
     Dates: start: 20170417, end: 20170419
  14. DEXAMETHASONE SODIUM PHOSPHATE. [Concomitant]
     Active Substance: DEXAMETHASONE SODIUM PHOSPHATE
     Dosage: 12 MG, QD
     Route: 042
     Dates: start: 20170213, end: 20170216
  15. SOLONDO [Concomitant]
     Active Substance: PREDNISOLONE
     Dosage: 30 MG, BID
     Route: 048
     Dates: start: 20170213, end: 20170216
  16. ALOXI [Concomitant]
     Active Substance: PALONOSETRON HYDROCHLORIDE
     Dosage: 0.25 MG, ONCE
     Route: 042
     Dates: start: 20170327, end: 20170327
  17. EMEND (FOSAPREPITANT DIMEGLUMINE) [Suspect]
     Active Substance: FOSAPREPITANT DIMEGLUMINE
     Dosage: 150 MG, ONCE
     Route: 042
     Dates: start: 20170327, end: 20170327
  18. VINCRISTINE SULFATE. [Concomitant]
     Active Substance: VINCRISTINE SULFATE
     Indication: DIFFUSE LARGE B-CELL LYMPHOMA
     Dosage: 2 MG, ONCE; CYCLE 21
     Route: 042
     Dates: start: 20170213, end: 20170213
  19. MABTHERA [Concomitant]
     Active Substance: RITUXIMAB
     Dosage: 626.25 MG, ONCE; CYCLE 21
     Route: 042
     Dates: start: 20170327, end: 20170327
  20. MABTHERA [Concomitant]
     Active Substance: RITUXIMAB
     Dosage: 626.25 MG, ONCE (ROUTE: INF); CYCLE 21
     Dates: start: 20170417, end: 20170417
  21. ENDOXAN [Concomitant]
     Active Substance: CYCLOPHOSPHAMIDE
     Dosage: 1237.5, ONCE (ROUTE: INF); CYCLE 21
     Dates: start: 20170510, end: 20170510
  22. DEXAMETHASONE SODIUM PHOSPHATE. [Concomitant]
     Active Substance: DEXAMETHASONE SODIUM PHOSPHATE
     Dosage: 12 MG, QD
     Route: 042
     Dates: start: 20170511, end: 20170512
  23. ALOXI [Concomitant]
     Active Substance: PALONOSETRON HYDROCHLORIDE
     Dosage: 0.25 MG, ONCE
     Route: 042
     Dates: start: 20170510, end: 20170510
  24. EMEND (FOSAPREPITANT DIMEGLUMINE) [Suspect]
     Active Substance: FOSAPREPITANT DIMEGLUMINE
     Indication: PROPHYLAXIS OF NAUSEA AND VOMITING
     Dosage: 150 MG, ONCE
     Route: 042
     Dates: start: 20170112, end: 20170112
  25. VINCRISTINE SULFATE. [Concomitant]
     Active Substance: VINCRISTINE SULFATE
     Dosage: 2 MG, ONCE; CYCLE 21
     Route: 042
     Dates: start: 20170417, end: 20170417
  26. DOXORUBICIN [Concomitant]
     Active Substance: DOXORUBICIN
     Dosage: 88.5 MG, ONCE (ROUTE: INF); CYCLE 21
     Dates: start: 20170417, end: 20170417
  27. DEXAMETHASONE SODIUM PHOSPHATE. [Concomitant]
     Active Substance: DEXAMETHASONE SODIUM PHOSPHATE
     Dosage: 12 MG, QD
     Route: 042
     Dates: start: 20170417, end: 20170419
  28. ALOXI [Concomitant]
     Active Substance: PALONOSETRON HYDROCHLORIDE
     Dosage: 0.25 MG, ONCE
     Route: 042
     Dates: start: 20170417, end: 20170417
  29. PHENIRAMINE (CHLORPHENIRAMINE MALEATE) [Concomitant]
     Active Substance: CHLORPHENIRAMINE MALEATE
     Indication: ALLERGY PROPHYLAXIS
     Dosage: 4 MG, ONCE
     Route: 042
     Dates: start: 20170213, end: 20170213
  30. PHENIRAMINE (CHLORPHENIRAMINE MALEATE) [Concomitant]
     Active Substance: CHLORPHENIRAMINE MALEATE
     Dosage: 4 MG, ONCE
     Route: 042
     Dates: start: 20170306, end: 20170306
  31. EMEND (FOSAPREPITANT DIMEGLUMINE) [Suspect]
     Active Substance: FOSAPREPITANT DIMEGLUMINE
     Dosage: 150 MG, ONCE
     Route: 042
     Dates: start: 20170510, end: 20170510
  32. ENDOXAN [Concomitant]
     Active Substance: CYCLOPHOSPHAMIDE
     Indication: DIFFUSE LARGE B-CELL LYMPHOMA
     Dosage: 1298.5, ONCE (ROUTE: INF); CYCLE 21
     Dates: start: 20170112, end: 20170112
  33. DEXAMETHASONE SODIUM PHOSPHATE. [Concomitant]
     Active Substance: DEXAMETHASONE SODIUM PHOSPHATE
     Dosage: 12 MG, QD
     Route: 042
     Dates: start: 20170327, end: 20170329
  34. DEXAMETHASONE SODIUM PHOSPHATE. [Concomitant]
     Active Substance: DEXAMETHASONE SODIUM PHOSPHATE
     Dosage: 12 MG, QD
     Route: 042
     Dates: start: 20170510, end: 20170510
  35. SOLONDO [Concomitant]
     Active Substance: PREDNISOLONE
     Dosage: 30 MG, BID
     Route: 048
     Dates: start: 20170306, end: 20170310
  36. LASIX [Concomitant]
     Active Substance: FUROSEMIDE
     Indication: PROPHYLAXIS
     Dosage: 20 MG, ONCE
     Route: 048
     Dates: start: 20170213, end: 20170213
  37. ENDOXAN [Concomitant]
     Active Substance: CYCLOPHOSPHAMIDE
     Dosage: 1252.5 MG, ONCE (ROUTE: INF); CYCLE 21
     Dates: start: 20170417, end: 20170417
  38. DEXAMETHASONE SODIUM PHOSPHATE. [Concomitant]
     Active Substance: DEXAMETHASONE SODIUM PHOSPHATE
     Dosage: 12 MG, QD
     Route: 042
     Dates: start: 20170306, end: 20170310
  39. ALOXI [Concomitant]
     Active Substance: PALONOSETRON HYDROCHLORIDE
     Indication: PROPHYLAXIS OF NAUSEA AND VOMITING
     Dosage: 0.25 MG, ONCE
     Route: 042
     Dates: start: 20170112, end: 20170112
  40. EMEND (FOSAPREPITANT DIMEGLUMINE) [Suspect]
     Active Substance: FOSAPREPITANT DIMEGLUMINE
     Dosage: 150 MG, ONCE
     Route: 042
     Dates: start: 20170306, end: 20170306
  41. EMEND (FOSAPREPITANT DIMEGLUMINE) [Suspect]
     Active Substance: FOSAPREPITANT DIMEGLUMINE
     Dosage: 150 MG, ONCE
     Route: 042
     Dates: start: 20170417, end: 20170417
  42. VINCRISTINE SULFATE. [Concomitant]
     Active Substance: VINCRISTINE SULFATE
     Dosage: 2 MG, ONCE; CYCLE 21
     Route: 042
     Dates: start: 20170327, end: 20170327
  43. MABTHERA [Concomitant]
     Active Substance: RITUXIMAB
     Indication: DIFFUSE LARGE B-CELL LYMPHOMA
     Dosage: 622.5 MG, ONCE (ROUTE: INF) CYCLE 21
     Dates: start: 20170213, end: 20170213
  44. DOXORUBICIN [Concomitant]
     Active Substance: DOXORUBICIN
     Indication: DIFFUSE LARGE B-CELL LYMPHOMA
     Dosage: 88 MG, ONCE (ROUTE: INF); CYCLE 21
     Dates: start: 20170213, end: 20170213
  45. DEXAMETHASONE SODIUM PHOSPHATE. [Concomitant]
     Active Substance: DEXAMETHASONE SODIUM PHOSPHATE
     Indication: PROPHYLAXIS OF NAUSEA AND VOMITING
     Dosage: 12 MG, QD
     Route: 042
     Dates: start: 20170112, end: 20170115
  46. ALOXI [Concomitant]
     Active Substance: PALONOSETRON HYDROCHLORIDE
     Dosage: 0.25 MG, ONCE
     Route: 042
     Dates: start: 20170306, end: 20170306
  47. PHENIRAMINE (CHLORPHENIRAMINE MALEATE) [Concomitant]
     Active Substance: CHLORPHENIRAMINE MALEATE
     Dosage: 4 MG, ONCE
     Route: 042
     Dates: start: 20170327, end: 20170327
  48. ORODIPINE [Concomitant]
     Indication: HYPERTENSION
     Dosage: 1 DF (TABLET), QD
     Route: 048

REACTIONS (1)
  - Deep vein thrombosis [Recovered/Resolved]

NARRATIVE: CASE EVENT DATE: 20170214
